FAERS Safety Report 23653369 (Version 1)
Quarter: 2024Q1

REPORT INFORMATION
  Report Type: Spontaneous
  Country: FR (occurrence: FR)
  Receive Date: 20240320
  Receipt Date: 20240320
  Transmission Date: 20240410
  Serious: Yes (Death)
  Sender: FDA-Public Use
  Company Number: None

PATIENT
  Age: 75 Year
  Sex: Female
  Weight: 66 kg

DRUGS (8)
  1. APREPITANT [Suspect]
     Active Substance: APREPITANT
     Dosage: 125.000MG QD
     Route: 048
     Dates: start: 20240206, end: 20240206
  2. APREPITANT [Suspect]
     Active Substance: APREPITANT
     Indication: Prophylaxis of nausea and vomiting
     Dosage: 80.000MG QD
     Route: 048
     Dates: start: 20240207, end: 20240208
  3. ENHERTU [Suspect]
     Active Substance: FAM-TRASTUZUMAB DERUXTECAN-NXKI
     Indication: Invasive ductal breast carcinoma
     Dosage: 300 MG 5.4MG/M?
     Route: 042
     Dates: start: 20240206, end: 20240206
  4. METOCLOPRAMIDE [Suspect]
     Active Substance: METOCLOPRAMIDE
     Indication: Prophylaxis of nausea and vomiting
     Dosage: 10.000MG TID
     Route: 048
     Dates: start: 20240206, end: 20240206
  5. ONDANSETRON [Suspect]
     Active Substance: ONDANSETRON
     Indication: Prophylaxis of nausea and vomiting
     Dosage: 8.000MG
     Route: 048
     Dates: start: 20240206, end: 20240206
  6. PEGFILGRASTIM [Suspect]
     Active Substance: PEGFILGRASTIM
     Indication: Neutropenia
     Dosage: 6.000MG QD
     Route: 058
     Dates: start: 20240208, end: 20240208
  7. PREDNISONE [Suspect]
     Active Substance: PREDNISONE
     Indication: Prophylaxis of nausea and vomiting
     Dosage: 60.000MG QD
     Route: 048
     Dates: start: 20240207, end: 20240209
  8. PREDNISONE [Suspect]
     Active Substance: PREDNISONE
     Dosage: 80.000MG QD
     Route: 048
     Dates: start: 20240206, end: 20240206

REACTIONS (3)
  - Abdominal rigidity [Fatal]
  - Nausea [Fatal]
  - Vomiting [Fatal]

NARRATIVE: CASE EVENT DATE: 20240209
